FAERS Safety Report 8108119-9 (Version None)
Quarter: 2011Q4

REPORT INFORMATION
  Report Type: 
  Country: None (occurrence: None)
  Receive Date: 20111227
  Receipt Date: 20111019
  Transmission Date: 20120403
  Serious: Yes (Other)
  Sender: FDA-Public Use
  Company Number: PHHY2011US62191

PATIENT
  Age: 51 Year
  Sex: Female

DRUGS (5)
  1. LAXATIVES (NO INGREDIENTS/SUBSTANCES) [Concomitant]
  2. ATIVAN [Concomitant]
  3. ZONISAMIDE [Concomitant]
  4. GILENYA [Suspect]
     Indication: MULTIPLE SCLEROSIS
     Dosage: 0.5 MG, QD, ORAL
     Route: 048
     Dates: start: 20110624
  5. TOPAMAX [Concomitant]

REACTIONS (5)
  - HYPOAESTHESIA [None]
  - STRESS [None]
  - CLAUSTROPHOBIA [None]
  - ANXIETY [None]
  - MULTIPLE SCLEROSIS RELAPSE [None]
